FAERS Safety Report 8807287 (Version 1)
Quarter: 2012Q4

REPORT INFORMATION
  Report Type: 
  Country: AT (occurrence: AT)
  Receive Date: 20120925
  Receipt Date: 20120925
  Transmission Date: 20130627
  Serious: Yes (Other)
  Sender: FDA-Public Use
  Company Number: AT-VERTEX PHARMACEUTICAL INC.-2012-021745

PATIENT
  Sex: Male

DRUGS (1)
  1. INCIVO [Suspect]
     Indication: HEPATITIS C
     Dosage: UNK

REACTIONS (2)
  - Dyspnoea [Unknown]
  - Sense of oppression [Unknown]
